FAERS Safety Report 6314777-1 (Version None)
Quarter: 2009Q3

REPORT INFORMATION
  Report Type: 
  Country: None (occurrence: None)
  Receive Date: 20090817
  Receipt Date: 20090803
  Transmission Date: 20100115
  Serious: Yes (Hospitalization)
  Sender: FDA-Public Use
  Company Number: 2009S1013640

PATIENT
  Age: 87 Year
  Sex: Male

DRUGS (11)
  1. ALENDRONATE SODIUM [Suspect]
     Indication: OSTEOPOROSIS
     Dosage: 70 MG; WEEKLY
     Dates: start: 20080718
  2. ASPIRIN [Suspect]
     Indication: CEREBROVASCULAR ACCIDENT
     Dates: start: 20090718, end: 20090720
  3. ALLOPURINOL [Concomitant]
  4. AMISULPRIDE (AMISULPRIDE) [Concomitant]
  5. CALCEOS (LEKOVIT CA) [Concomitant]
  6. DOCUSATE SODIUM (DOCUSATE SODIUM) [Concomitant]
  7. FUROSEMIDE [Concomitant]
  8. MIRTAZAPINE [Concomitant]
  9. MOVICOL (NULYTELY /01053601/) [Concomitant]
  10. PARACETAMOL (PARACETAMOL) [Concomitant]
  11. SENNA (SENNA ALEXANDRINA) [Concomitant]

REACTIONS (3)
  - GASTROINTESTINAL HAEMORRHAGE [None]
  - HAEMATEMESIS [None]
  - MELAENA [None]
